FAERS Safety Report 5691590-X (Version None)
Quarter: 2008Q2

REPORT INFORMATION
  Report Type: 
  Country: None (occurrence: None)
  Receive Date: 20080402
  Receipt Date: 20080325
  Transmission Date: 20081010
  Serious: Yes (Hospitalization)
  Sender: FDA-Public Use
  Company Number: US-AMGEN-US271299

PATIENT
  Sex: Female
  Weight: 49.9 kg

DRUGS (4)
  1. PROCRIT [Suspect]
     Indication: ANAEMIA
     Route: 058
  2. UNSPECIFIED ANTIHYPERTENSIVE AGENT [Concomitant]
  3. ALLOPURINOL [Concomitant]
  4. UNSPECIFIED HORMONE REPLACEMENT THERAPY AGENT [Concomitant]

REACTIONS (1)
  - HOSPITALISATION [None]
